FAERS Safety Report 8250488-3 (Version None)
Quarter: 2012Q2

REPORT INFORMATION
  Report Type: 
  Country: None (occurrence: None)
  Receive Date: 20120402
  Receipt Date: 20120402
  Transmission Date: 20120825
  Serious: Yes (Death)
  Sender: FDA-Public Use
  Company Number: None

PATIENT
  Sex: Male
  Weight: 102.9 kg

DRUGS (1)
  1. SORABENIB [Suspect]
     Indication: COLORECTAL CANCER METASTATIC
     Dosage: 200.0 MG
     Route: 048
     Dates: start: 20120220, end: 20120312

REACTIONS (5)
  - LYMPHADENOPATHY MEDIASTINAL [None]
  - LIVER DISORDER [None]
  - LUNG DISORDER [None]
  - DISEASE PROGRESSION [None]
  - LYMPHADENOPATHY [None]
